FAERS Safety Report 8933959 (Version 1)
Quarter: 2012Q4

REPORT INFORMATION
  Report Type: 
  Country: US (occurrence: US)
  Receive Date: 20121129
  Receipt Date: 20121129
  Transmission Date: 20130627
  Serious: Yes (Other)
  Sender: FDA-Public Use
  Company Number: US-ELI_LILLY_AND_COMPANY-US201211005904

PATIENT

DRUGS (1)
  1. PROZAC [Suspect]
     Dosage: 1 DF, unknown
     Route: 064

REACTIONS (9)
  - Tremor [Unknown]
  - Drug withdrawal syndrome neonatal [Unknown]
  - Dystonia [Unknown]
  - Asperger^s disorder [Unknown]
  - Muscular weakness [Unknown]
  - Gait disturbance [Unknown]
  - Speech disorder [Unknown]
  - Abnormal behaviour [Unknown]
  - Foetal exposure during pregnancy [Recovered/Resolved]
